FAERS Safety Report 17495179 (Version 1)
Quarter: 2020Q1

REPORT INFORMATION
  Report Type: Spontaneous
  Country: US (occurrence: US)
  Receive Date: 20200304
  Receipt Date: 20200304
  Transmission Date: 20200409
  Serious: No
  Sender: FDA-Public Use
  Company Number: US-BIODELIVERY SCIENCES INTERNATIONAL-2020BDSI0083

PATIENT
  Sex: Female
  Weight: 49.94 kg

DRUGS (6)
  1. BUPRENORPHINE. [Suspect]
     Active Substance: BUPRENORPHINE
     Indication: PAIN
     Route: 002
     Dates: start: 20200124
  2. INDOMETACIN [Concomitant]
     Active Substance: INDOMETHACIN
     Indication: SYSTEMIC LUPUS ERYTHEMATOSUS
     Dosage: AT NIGHT
     Route: 048
  3. PARACETAMOL/HYDROCODONE BITARTRATE [Concomitant]
     Active Substance: ACETAMINOPHEN\HYDROCODONE BITARTRATE
     Indication: PRODUCT USED FOR UNKNOWN INDICATION
     Dosage: 3 TIMES A MONTH, AS NEEDED
     Route: 048
  4. PREDNISONE. [Concomitant]
     Active Substance: PREDNISONE
     Indication: PRODUCT USED FOR UNKNOWN INDICATION
     Route: 048
  5. INDOMETACIN [Concomitant]
     Active Substance: INDOMETHACIN
     Indication: SYSTEMIC LUPUS ERYTHEMATOSUS
     Dosage: ONCE IN THE MORNING
     Route: 048
  6. BUPRENORPHINE. [Suspect]
     Active Substance: BUPRENORPHINE

REACTIONS (5)
  - Product solubility abnormal [Unknown]
  - Wrong technique in product usage process [Unknown]
  - Product adhesion issue [Unknown]
  - Product physical consistency issue [Unknown]
  - Oral administration complication [Unknown]

NARRATIVE: CASE EVENT DATE: 2020
